FAERS Safety Report 4745923-9 (Version None)
Quarter: 2005Q3

REPORT INFORMATION
  Report Type: 
  Country: None (occurrence: None)
  Receive Date: 20050816
  Receipt Date: 20050810
  Transmission Date: 20060218
  Serious: Yes (Other)
  Sender: FDA-Public Use
  Company Number: US-GLAXOSMITHKLINE-A0570086A

PATIENT
  Age: 36 Year
  Sex: Female

DRUGS (3)
  1. BUPROPION [Suspect]
     Indication: MAJOR DEPRESSION
     Dates: start: 20050402, end: 20050629
  2. TERBUTALINE [Concomitant]
  3. MAGNESIUM [Concomitant]

REACTIONS (3)
  - ACNE [None]
  - DRUG EXPOSURE DURING PREGNANCY [None]
  - UTERINE CONTRACTIONS DURING PREGNANCY [None]
